FAERS Safety Report 21890421 (Version 1)
Quarter: 2023Q1

REPORT INFORMATION
  Report Type: Spontaneous
  Country: US (occurrence: None)
  Receive Date: 20230119
  Receipt Date: 20230119
  Transmission Date: 20230417
  Serious: Yes (Hospitalization)
  Sender: FDA-Public Use
  Company Number: None

PATIENT
  Age: 62 Year
  Sex: Male
  Weight: 106 kg

DRUGS (2)
  1. XELODA [Suspect]
     Active Substance: CAPECITABINE
     Indication: Pancreatic carcinoma
     Dates: start: 20221130, end: 20230109
  2. RADIATION THERAPY [Concomitant]
     Active Substance: RADIATION THERAPY
     Dates: start: 20221130, end: 20230109

REACTIONS (8)
  - Palmar-plantar erythrodysaesthesia syndrome [None]
  - Malnutrition [None]
  - Physical deconditioning [None]
  - Skin exfoliation [None]
  - Hypoaesthesia [None]
  - Pain in extremity [None]
  - Pain in extremity [None]
  - Penile ulceration [None]

NARRATIVE: CASE EVENT DATE: 20230110
